FAERS Safety Report 8337662-2 (Version None)
Quarter: 2012Q2

REPORT INFORMATION
  Report Type: 
  Country: None (occurrence: None)
  Receive Date: 20120504
  Receipt Date: 20120504
  Transmission Date: 20120825
  Serious: Yes (Other)
  Sender: FDA-Public Use
  Company Number: None

PATIENT
  Age: 44 Year
  Sex: Male
  Weight: 90.718 kg

DRUGS (4)
  1. ALPRAZOLAM [Suspect]
     Indication: PANIC DISORDER
     Dosage: |DOSAGETEXT: 6.0 MG||STRENGTH: 2 MG||FREQ: 2 MG TID||ROUTE: ORAL|
     Route: 048
     Dates: start: 20010911, end: 20120911
  2. ALPRAZOLAM [Suspect]
     Indication: GENERALISED ANXIETY DISORDER
     Dosage: |DOSAGETEXT: 6.0 MG||STRENGTH: 2 MG||FREQ: 2 MG TID||ROUTE: ORAL|
     Route: 048
     Dates: start: 20010911, end: 20120911
  3. ALPRAZOLAM [Suspect]
     Indication: DRUG RESISTANCE
     Dosage: |DOSAGETEXT: 6.0 MG||STRENGTH: 2 MG||FREQ: 2 MG TID||ROUTE: ORAL|
     Route: 048
     Dates: start: 20010911, end: 20120911
  4. ANDROGEL [Suspect]
     Indication: SECONDARY HYPOGONADISM
     Dosage: |DOSAGETEXT: 8 SQUIRTS||STRENGTH: 1%||FREQ: DAILY||ROUTE: CUTANEOUS|
     Route: 003
     Dates: start: 20010911, end: 20120911

REACTIONS (3)
  - PRODUCT QUALITY ISSUE [None]
  - HYPERSOMNIA [None]
  - PRODUCT SOLUBILITY ABNORMAL [None]
